FAERS Safety Report 4366099-6 (Version None)
Quarter: 2004Q2

REPORT INFORMATION
  Report Type: 
  Country: None (occurrence: None)
  Receive Date: 20040526
  Receipt Date: 20040526
  Transmission Date: 20050107
  Serious: No
  Sender: FDA-Public Use
  Company Number: None

PATIENT
  Sex: Female

DRUGS (6)
  1. NAMENDA [Suspect]
     Indication: DEMENTIA ALZHEIMER'S TYPE
  2. PROTONIX [Concomitant]
  3. NITROGLYCERIN [Concomitant]
  4. ATIVAN [Concomitant]
  5. NORVASC [Concomitant]
  6. FLONASE [Concomitant]

REACTIONS (5)
  - BELLIGERENCE [None]
  - DELUSION [None]
  - DISTURBANCE IN SOCIAL BEHAVIOUR [None]
  - HALLUCINATION [None]
  - PARANOIA [None]
